FAERS Safety Report 12188841 (Version 3)
Quarter: 2016Q2

REPORT INFORMATION
  Report Type: Spontaneous
  Country: US (occurrence: US)
  Receive Date: 20160317
  Receipt Date: 20160607
  Transmission Date: 20160815
  Serious: Yes (Other)
  Sender: FDA-Public Use
  Company Number: US-TEVA-642474USA

PATIENT
  Age: 57 Year
  Sex: Female

DRUGS (1)
  1. ZECUITY [Suspect]
     Active Substance: SUMATRIPTAN SUCCINATE
     Dosage: USED MULTIPLE OTHER PATCHES PRIOR 19-JAN-2016
     Route: 062
     Dates: end: 20160119

REACTIONS (11)
  - Application site erythema [Recovered/Resolved]
  - Application site exfoliation [Recovered/Resolved]
  - Sunburn [Recovered/Resolved]
  - Application site reaction [Recovered/Resolved]
  - Application site swelling [Recovered/Resolved]
  - Application site discomfort [Recovered/Resolved]
  - Dermatitis allergic [Recovered/Resolved]
  - Product physical issue [Recovered/Resolved]
  - Device battery issue [Unknown]
  - Product adhesion issue [Unknown]
  - Application site pruritus [Recovered/Resolved]

NARRATIVE: CASE EVENT DATE: 20160119
